FAERS Safety Report 5512529-3 (Version None)
Quarter: 2007Q4

REPORT INFORMATION
  Report Type: 
  Country: None (occurrence: None)
  Receive Date: 20071112
  Receipt Date: 20070621
  Transmission Date: 20080405
  Serious: No
  Sender: FDA-Public Use
  Company Number: A0659216A

PATIENT
  Age: 46 Year
  Sex: Female

DRUGS (7)
  1. AVANDAMET [Suspect]
     Dosage: 1TAB TWICE PER DAY
     Route: 048
     Dates: start: 20070101, end: 20070601
  2. AVANDIA [Suspect]
     Route: 048
     Dates: start: 20050101, end: 20051201
  3. STARLIX [Concomitant]
  4. METFORMIN [Concomitant]
  5. UNKNOWN MEDICATION [Concomitant]
  6. BENICAR [Concomitant]
  7. ADVICOR [Concomitant]

REACTIONS (1)
  - WEIGHT INCREASED [None]
